FAERS Safety Report 5915813-4 (Version None)
Quarter: 2008Q4

REPORT INFORMATION
  Report Type: 
  Country: None (occurrence: None)
  Receive Date: 20081010
  Receipt Date: 20080930
  Transmission Date: 20090506
  Serious: Yes (Hospitalization, Other)
  Sender: FDA-Public Use
  Company Number: US-PFIZER INC-2008082535

PATIENT
  Sex: Female
  Weight: 50.909 kg

DRUGS (11)
  1. LIPITOR [Suspect]
     Indication: BLOOD CHOLESTEROL INCREASED
  2. LIPITOR [Suspect]
     Indication: CAROTID ARTERY OCCLUSION
  3. AMOXICILLIN [Suspect]
     Indication: LABYRINTHITIS
     Dates: start: 20080901
  4. VYTORIN [Suspect]
  5. ZETIA [Suspect]
  6. XANAX [Concomitant]
  7. HYDROCHLOROTHIAZIDE [Concomitant]
  8. PROTONIX [Concomitant]
  9. ALBUTEROL SULFATE/IPRATROPIUM BROMIDE [Concomitant]
  10. ALBUTEROL [Concomitant]
  11. MONTELUKAST SODIUM [Concomitant]

REACTIONS (16)
  - BLOOD URINE PRESENT [None]
  - BRONCHITIS [None]
  - CAROTID ARTERY OCCLUSION [None]
  - CHILLS [None]
  - ILL-DEFINED DISORDER [None]
  - INFLUENZA [None]
  - INNER EAR DISORDER [None]
  - MALAISE [None]
  - MUSCLE SPASMS [None]
  - NAUSEA [None]
  - PAIN [None]
  - PNEUMONIA [None]
  - PYREXIA [None]
  - TINNITUS [None]
  - TREMOR [None]
  - WRONG TECHNIQUE IN DRUG USAGE PROCESS [None]
